FAERS Safety Report 9034657 (Version 2)
Quarter: 2013Q3

REPORT INFORMATION
  Report Type: Spontaneous
  Country: US (occurrence: US)
  Receive Date: 20130128
  Receipt Date: 20130718
  Transmission Date: 20140515
  Serious: Yes (Death, Hospitalization)
  Sender: FDA-Public Use
  Company Number: US-GLAXOSMITHKLINE-A1009791A

PATIENT
  Age: 55 Year
  Sex: Female

DRUGS (1)
  1. FLOLAN [Suspect]
     Indication: PULMONARY ARTERIAL HYPERTENSION
     Dosage: 23NGKM CONTINUOUS
     Route: 042
     Dates: start: 20031213

REACTIONS (3)
  - Death [Fatal]
  - Syncope [Unknown]
  - Palpitations [Unknown]
